FAERS Safety Report 9519993 (Version 4)
Quarter: 2014Q1

REPORT INFORMATION
  Report Type: Report from Study
  Country: JP (occurrence: JP)
  Receive Date: 20130912
  Receipt Date: 20140217
  Transmission Date: 20141002
  Serious: Yes (Hospitalization)
  Sender: FDA-Public Use
  Company Number: JP-UCBSA-096962

PATIENT
  Age: 72 Year
  Sex: Female
  Weight: 41.2 kg

DRUGS (9)
  1. CIMZIA [Suspect]
     Indication: RHEUMATOID ARTHRITIS
     Dosage: STRENGTH: 200 MG SYRINGE
     Route: 058
     Dates: start: 20130529, end: 20130626
  2. CIMZIA [Suspect]
     Indication: RHEUMATOID ARTHRITIS
     Dosage: 200 MG SYRINGE
     Route: 058
     Dates: start: 20130710, end: 20130821
  3. RHEUMATREX [Suspect]
     Indication: RHEUMATOID ARTHRITIS
     Dosage: 12 MG PER WEEK
     Route: 048
     Dates: end: 20130824
  4. FOLIAMIN [Concomitant]
     Dosage: DAILY DOSE: 5 MG
     Route: 048
  5. PARIET [Concomitant]
     Dosage: DAILY DOSE: 10 MG
     Route: 048
  6. ISCOTIN [Concomitant]
     Dosage: DAILY DOSE: 300 MG
     Route: 048
     Dates: start: 20130529
  7. AZULFIDINE-EN [Concomitant]
     Route: 048
     Dates: end: 20130611
  8. CELECOX [Concomitant]
     Route: 048
     Dates: end: 20130611
  9. PYDOXAL [Concomitant]
     Route: 048
     Dates: start: 20130612

REACTIONS (1)
  - Pneumocystis jirovecii pneumonia [Recovered/Resolved]
